FAERS Safety Report 16192178 (Version 6)
Quarter: 2020Q4

REPORT INFORMATION
  Report Type: Report from Study
  Country: BR (occurrence: BR)
  Receive Date: 20190412
  Receipt Date: 20201103
  Transmission Date: 20210113
  Serious: Yes (Other)
  Sender: FDA-Public Use
  Company Number: PHHY2019BR072304

PATIENT
  Age: 63 Year
  Sex: Female

DRUGS (12)
  1. COSENTYX [Suspect]
     Active Substance: SECUKINUMAB
     Indication: PSORIATIC ARTHROPATHY
     Dosage: 300 MG, UNK (PEN)
     Route: 065
     Dates: start: 20190328
  2. COSENTYX [Suspect]
     Active Substance: SECUKINUMAB
     Dosage: 300 MG, UNK (PEN)
     Route: 065
     Dates: start: 20190418
  3. COSENTYX [Suspect]
     Active Substance: SECUKINUMAB
     Dosage: 300 MG, UNK (PEN)
     Route: 065
     Dates: start: 20190411
  4. COSENTYX [Suspect]
     Active Substance: SECUKINUMAB
     Dosage: 150 MG, UNK (PEN)
     Route: 065
     Dates: start: 20190618
  5. COSENTYX [Suspect]
     Active Substance: SECUKINUMAB
     Dosage: 150 MG, UNK (PEN)
     Route: 065
     Dates: start: 20190718
  6. COSENTYX [Suspect]
     Active Substance: SECUKINUMAB
     Indication: PSORIASIS
     Dosage: 300 MG, UNK (PEN)
     Route: 065
     Dates: start: 20190321
  7. COSENTYX [Suspect]
     Active Substance: SECUKINUMAB
     Dosage: UNK
     Route: 065
     Dates: start: 20201019
  8. COSENTYX [Suspect]
     Active Substance: SECUKINUMAB
     Dosage: 300 MG, UNK (PEN)
     Route: 065
     Dates: start: 20190404
  9. COSENTYX [Suspect]
     Active Substance: SECUKINUMAB
     Dosage: 150 MG, UNK (PEN)
     Route: 065
     Dates: start: 20190518
  10. COSENTYX [Suspect]
     Active Substance: SECUKINUMAB
     Dosage: UNK
     Route: 065
     Dates: start: 20200218
  11. COSENTYX [Suspect]
     Active Substance: SECUKINUMAB
     Dosage: UNK
     Route: 065
     Dates: start: 20200419
  12. CELECOXIB. [Suspect]
     Active Substance: CELECOXIB
     Indication: PRODUCT USED FOR UNKNOWN INDICATION
     Dosage: UNK
     Route: 065

REACTIONS (30)
  - Panic disorder [Unknown]
  - Pruritus [Unknown]
  - Crying [Not Recovered/Not Resolved]
  - Arrhythmia [Unknown]
  - Peripheral swelling [Not Recovered/Not Resolved]
  - Insomnia [Unknown]
  - Mobility decreased [Unknown]
  - Hypertension [Unknown]
  - Pain [Recovering/Resolving]
  - Back pain [Recovered/Resolved]
  - Malaise [Not Recovered/Not Resolved]
  - Drug ineffective [Not Recovered/Not Resolved]
  - Pain in extremity [Recovering/Resolving]
  - Arthritis [Unknown]
  - Spinal pain [Recovered/Resolved]
  - Arthropathy [Recovering/Resolving]
  - Wound [Unknown]
  - Musculoskeletal stiffness [Unknown]
  - Neck pain [Unknown]
  - Injection site pain [Recovering/Resolving]
  - Hypoacusis [Recovering/Resolving]
  - Peripheral swelling [Recovered/Resolved]
  - Neuritis [Unknown]
  - Arthralgia [Not Recovered/Not Resolved]
  - Spinal disorder [Unknown]
  - Joint lock [Recovered/Resolved]
  - Gait inability [Not Recovered/Not Resolved]
  - Pharmacophobia [Not Recovered/Not Resolved]
  - Product prescribing error [Recovered/Resolved]
  - Sensitivity to weather change [Unknown]

NARRATIVE: CASE EVENT DATE: 20190323
